FAERS Safety Report 21582557 (Version 1)
Quarter: 2022Q4

REPORT INFORMATION
  Report Type: Spontaneous
  Country: US (occurrence: None)
  Receive Date: 20221111
  Receipt Date: 20221111
  Transmission Date: 20230113
  Serious: Yes (Hospitalization, Other)
  Sender: FDA-Public Use
  Company Number: US-ROCHE-3216106

PATIENT
  Age: 55 Year
  Sex: Female

DRUGS (2)
  1. MYCOPHENOLATE MOFETIL [Suspect]
     Active Substance: MYCOPHENOLATE MOFETIL
     Indication: Product used for unknown indication
     Route: 065
  2. LUPKYNIS [Suspect]
     Active Substance: VOCLOSPORIN
     Indication: Product used for unknown indication
     Route: 048

REACTIONS (6)
  - Nausea [Unknown]
  - Abdominal pain [Unknown]
  - Gastrointestinal inflammation [Unknown]
  - Retching [Unknown]
  - Vomiting [Unknown]
  - Internal hernia [Unknown]
